FAERS Safety Report 5317560-9 (Version None)
Quarter: 2007Q2

REPORT INFORMATION
  Report Type: 
  Country: None (occurrence: None)
  Receive Date: 20070507
  Receipt Date: 20070425
  Transmission Date: 20071010
  Serious: Yes (Other)
  Sender: FDA-Public Use
  Company Number: PHNU2007DE01642

PATIENT
  Sex: Female

DRUGS (1)
  1. ESTRADOT [Suspect]
     Indication: MENOPAUSAL SYMPTOMS
     Route: 062

REACTIONS (1)
  - MUSCULOSKELETAL PAIN [None]
